FAERS Safety Report 9003045 (Version 1)
Quarter: 2013Q1

REPORT INFORMATION
  Report Type: Spontaneous
  Country: US (occurrence: US)
  Receive Date: 20130108
  Receipt Date: 20130108
  Transmission Date: 20140127
  Serious: Yes (Death)
  Sender: FDA-Public Use
  Company Number: US-ASTRAZENECA-2013SE00924

PATIENT
  Age: 64 Year
  Sex: Female

DRUGS (21)
  1. ROSUVASTATIN [Suspect]
     Route: 048
  2. ESCITALOPRAM [Suspect]
     Route: 048
  3. VENLAFAXINE [Suspect]
     Route: 048
  4. POTASSIUM CHLORIDE [Suspect]
     Route: 048
  5. HYDROCHLOROTHIAZIDE [Suspect]
     Route: 048
  6. ACETAMINOPHEN HYDROCODONE [Suspect]
     Route: 048
  7. DESIPRAMINE [Suspect]
     Route: 048
  8. DILTIAZEM [Suspect]
     Route: 048
  9. LAMOTRIGINE [Suspect]
     Route: 048
  10. ARMODAFINIL [Suspect]
     Route: 048
  11. TRIFLUOPERAZINE [Suspect]
     Route: 048
  12. ACETAMINOPHEN\PROPOXYPHENE [Suspect]
     Route: 048
  13. THYROID PREPARATIONS [Suspect]
     Route: 048
  14. PANTOPRAZOLE [Suspect]
     Route: 048
  15. LANSOPRAZOLE [Suspect]
     Route: 048
  16. NAPROXEN [Suspect]
     Route: 048
  17. NITROFURANTOIN [Suspect]
     Route: 048
  18. DICLOFENAC [Suspect]
     Route: 048
  19. SOLIFENACIN [Suspect]
     Route: 048
  20. CIPROFLOXACIN [Suspect]
     Route: 048
  21. PROGESTIN (PROGESTERONE) [Suspect]
     Route: 048

REACTIONS (2)
  - Completed suicide [Fatal]
  - Toxicity to various agents [Fatal]
